FAERS Safety Report 9163146 (Version 1)
Quarter: 2013Q1

REPORT INFORMATION
  Report Type: Spontaneous
  Country: GB (occurrence: GB)
  Receive Date: 20130314
  Receipt Date: 20130314
  Transmission Date: 20140127
  Serious: Yes (Disabling)
  Sender: FDA-Public Use
  Company Number: GB-GLAXOSMITHKLINE-B0872487A

PATIENT
  Age: 64 Year
  Sex: Female
  Weight: 114.4 kg

DRUGS (12)
  1. ORLISTAT [Suspect]
     Indication: WEIGHT DECREASED
     Route: 048
  2. ZOPICLONE [Concomitant]
  3. DALTEPARIN [Concomitant]
  4. OMEPRAZOLE [Concomitant]
  5. SODIUM BICARBONATE [Concomitant]
  6. SIMVASTATIN [Concomitant]
  7. PREGABALIN [Concomitant]
  8. ASPIRIN [Concomitant]
  9. HUMALOG [Concomitant]
  10. ALFACALCIDOL [Concomitant]
  11. BISOPROLOL [Concomitant]
  12. CALCIUM ACETATE [Concomitant]

REACTIONS (2)
  - Renal failure acute [Not Recovered/Not Resolved]
  - Nephropathy [Not Recovered/Not Resolved]
